FAERS Safety Report 5634157-1 (Version None)
Quarter: 2008Q1

REPORT INFORMATION
  Report Type: 
  Country: None (occurrence: None)
  Receive Date: 20080221
  Receipt Date: 20080221
  Transmission Date: 20080703
  Serious: Yes (Other)
  Sender: FDA-Public Use
  Company Number: None

PATIENT
  Sex: Female
  Weight: 84.8226 kg

DRUGS (4)
  1. POTASSIUM CHLORIDE [Suspect]
     Indication: BLOOD POTASSIUM DECREASED
     Dosage: 20 MEQ SALICYLIC 6%
     Dates: start: 20071003, end: 20071204
  2. POTASSIUM CHLORIDE [Suspect]
     Indication: DRY SKIN
     Dosage: 20 MEQ SALICYLIC 6%
     Dates: start: 20071003, end: 20071204
  3. POTASSIUM CHLORIDE [Suspect]
     Indication: BLOOD POTASSIUM DECREASED
     Dosage: 20 MEQ SALICYLIC 6%
     Dates: start: 20061003, end: 20080101
  4. POTASSIUM CHLORIDE [Suspect]
     Indication: DRY SKIN
     Dosage: 20 MEQ SALICYLIC 6%
     Dates: start: 20061003, end: 20080101

REACTIONS (1)
  - SKIN EXFOLIATION [None]
